FAERS Safety Report 7086259-3 (Version None)
Quarter: 2010Q4

REPORT INFORMATION
  Report Type: 
  Country: None (occurrence: None)
  Receive Date: 20101105
  Receipt Date: 20101027
  Transmission Date: 20110411
  Serious: Yes (Hospitalization)
  Sender: FDA-Public Use
  Company Number: FR-SANOFI-AVENTIS-2010SA065680

PATIENT
  Age: 67 Year
  Sex: Male

DRUGS (12)
  1. LASIX [Suspect]
     Route: 048
  2. COLCHIMAX [Suspect]
     Indication: ARTHRITIS
     Route: 048
     Dates: start: 20100619, end: 20100622
  3. CELEBREX [Suspect]
     Indication: ARTHRITIS
     Route: 048
     Dates: start: 20100619, end: 20100622
  4. DIFFU K [Concomitant]
  5. ESIDRIX [Concomitant]
  6. ALDACTONE [Concomitant]
  7. TRACLEER [Concomitant]
  8. SILDENAFIL CITRATE [Concomitant]
  9. FLOLAN [Concomitant]
  10. OXYGEN [Concomitant]
  11. CORDARONE [Concomitant]
  12. ALLOPURINOL [Concomitant]

REACTIONS (5)
  - ANAEMIA [None]
  - DIARRHOEA [None]
  - HYPOKALAEMIA [None]
  - RENAL FAILURE CHRONIC [None]
  - VOMITING [None]
